FAERS Safety Report 6626530-X (Version None)
Quarter: 2010Q1

REPORT INFORMATION
  Report Type: 
  Country: None (occurrence: None)
  Receive Date: 20100309
  Receipt Date: 20100309
  Transmission Date: 20100710
  Serious: Yes (Hospitalization)
  Sender: FDA-Public Use
  Company Number: None

PATIENT
  Age: 52 Year
  Sex: Male
  Weight: 109 kg

DRUGS (4)
  1. TRAZODONE HCL [Suspect]
     Indication: DEPRESSION
     Dosage: 50 MG HS PO
     Route: 048
     Dates: start: 20030707, end: 20090603
  2. TRAZODONE HCL [Suspect]
     Indication: INSOMNIA
     Dosage: 50 MG HS PO
     Route: 048
     Dates: start: 20030707, end: 20090603
  3. QUETIAPINE [Suspect]
     Indication: DEPRESSION
     Dosage: 50 MG HS PO
     Route: 048
     Dates: start: 20090626, end: 20090906
  4. QUETIAPINE [Suspect]
     Indication: INSOMNIA
     Dosage: 50 MG HS PO
     Route: 048
     Dates: start: 20090626, end: 20090906

REACTIONS (3)
  - ANGIOPATHY [None]
  - PRIAPISM [None]
  - URETHRAL DISORDER [None]
